FAERS Safety Report 6284550-1 (Version None)
Quarter: 2009Q3

REPORT INFORMATION
  Report Type: 
  Country: None (occurrence: None)
  Receive Date: 20090727
  Receipt Date: 20090715
  Transmission Date: 20100115
  Serious: Yes (Hospitalization)
  Sender: FDA-Public Use
  Company Number: NL-NOVOPROD-280432

PATIENT
  Age: 80 Year
  Sex: Female
  Weight: 68 kg

DRUGS (4)
  1. NOVOLOG MIX 70/30 [Suspect]
     Indication: TYPE 2 DIABETES MELLITUS
     Dosage: 11+13 IU
     Dates: start: 20080727
  2. INSULATARD PENFILL [Suspect]
     Indication: TYPE 2 DIABETES MELLITUS
     Dosage: 16 IU, MORNING
     Route: 058
  3. NIFEDIPINE [Concomitant]
     Indication: HYPERTENSION
     Dosage: 10MG, 3 DAILY
  4. COAPROVEL [Concomitant]
     Indication: HYPERTENSION
     Dosage: 1, QD

REACTIONS (4)
  - BLOOD GLUCOSE INCREASED [None]
  - DIABETES MELLITUS INADEQUATE CONTROL [None]
  - HEART VALVE INCOMPETENCE [None]
  - WEIGHT INCREASED [None]
